FAERS Safety Report 8265198-6 (Version None)
Quarter: 2012Q2

REPORT INFORMATION
  Report Type: 
  Country: None (occurrence: None)
  Receive Date: 20120406
  Receipt Date: 20120323
  Transmission Date: 20120825
  Serious: Yes (Hospitalization)
  Sender: FDA-Public Use
  Company Number: US-ROCHE-1055364

PATIENT
  Sex: Male
  Weight: 85.26 kg

DRUGS (6)
  1. CYCLOPHOSPHAMIDE [Suspect]
     Indication: MANTLE CELL LYMPHOMA
     Dates: start: 20111118, end: 20111129
  2. DOXORUBICIN HYDROCHLORIDE [Suspect]
     Indication: MANTLE CELL LYMPHOMA
     Dates: start: 20111118, end: 20111129
  3. BORTEZOMIB [Suspect]
     Indication: MANTLE CELL LYMPHOMA
     Dates: start: 20111118, end: 20111129
  4. MABTHERA [Suspect]
     Indication: MANTLE CELL LYMPHOMA
     Dates: start: 20111118, end: 20111129
  5. VINCRISTINE [Suspect]
     Indication: MANTLE CELL LYMPHOMA
     Dates: start: 20111118, end: 20111129
  6. DEXAMETHASONE [Suspect]
     Indication: MANTLE CELL LYMPHOMA
     Dates: start: 20111118, end: 20111129

REACTIONS (4)
  - HAEMOGLOBIN DECREASED [None]
  - CEREBRAL INFARCTION [None]
  - WHITE BLOOD CELL COUNT INCREASED [None]
  - BLOOD PRESSURE SYSTOLIC INCREASED [None]
